FAERS Safety Report 19244862 (Version 1)
Quarter: 2021Q2

REPORT INFORMATION
  Report Type: Spontaneous
  Country: US (occurrence: US)
  Receive Date: 20210511
  Receipt Date: 20210511
  Transmission Date: 20210717
  Serious: Yes (Hospitalization, Other)
  Sender: FDA-Public Use
  Company Number: US-ABBVIE-21K-163-3896348-00

PATIENT
  Age: 55 Year
  Sex: Female

DRUGS (6)
  1. VERAPAMIL [Concomitant]
     Active Substance: VERAPAMIL HYDROCHLORIDE
     Indication: CARDIAC DISORDER
  2. DEPAKOTE [Suspect]
     Active Substance: DIVALPROEX SODIUM
     Indication: DYSTONIA
     Route: 048
     Dates: start: 1997, end: 202104
  3. DEPAKOTE [Suspect]
     Active Substance: DIVALPROEX SODIUM
     Dosage: DOSE INCREASED
     Route: 048
     Dates: start: 202104
  4. COVID?19 VACCINE NOS. [Concomitant]
     Active Substance: COVID-19 VACCINE NOS
     Dosage: MODERNA MANUFACTURER
     Route: 030
     Dates: start: 20210423, end: 20210423
  5. COVID?19 VACCINE NOS. [Concomitant]
     Active Substance: COVID-19 VACCINE NOS
     Indication: COVID-19 IMMUNISATION
     Dosage: MODERNA MANUFACTURER
     Route: 030
     Dates: start: 20210326, end: 20210326
  6. DEPAKOTE [Suspect]
     Active Substance: DIVALPROEX SODIUM
     Indication: DYSTONIA
     Route: 048

REACTIONS (9)
  - Cerebrovascular accident [Unknown]
  - Spinal disorder [Not Recovered/Not Resolved]
  - Spinal fusion surgery [Unknown]
  - Arthropathy [Not Recovered/Not Resolved]
  - Scoliosis [Recovered/Resolved with Sequelae]
  - Blood count abnormal [Recovered/Resolved]
  - Hysterectomy [Recovered/Resolved]
  - Road traffic accident [Recovered/Resolved]
  - Procedural pain [Unknown]

NARRATIVE: CASE EVENT DATE: 1998
